FAERS Safety Report 13455417 (Version 6)
Quarter: 2021Q4

REPORT INFORMATION
  Report Type: Spontaneous
  Country: US (occurrence: US)
  Receive Date: 20170419
  Receipt Date: 20211207
  Transmission Date: 20220303
  Serious: Yes (Other)
  Sender: FDA-Public Use
  Company Number: US-PFIZER INC-2017170824

PATIENT
  Age: 56 Year
  Sex: Female

DRUGS (1)
  1. XELJANZ [Suspect]
     Active Substance: TOFACITINIB CITRATE
     Indication: Rheumatoid arthritis
     Dosage: 5 MG, UNK
     Dates: start: 20160101

REACTIONS (4)
  - Diabetes mellitus [Unknown]
  - Upper respiratory tract infection [Unknown]
  - Stress [Unknown]
  - Joint stiffness [Unknown]
